FAERS Safety Report 5313625-6 (Version None)
Quarter: 2007Q2

REPORT INFORMATION
  Report Type: 
  Country: None (occurrence: None)
  Receive Date: 20070501
  Receipt Date: 20070423
  Transmission Date: 20071010
  Serious: Yes (Hospitalization)
  Sender: FDA-Public Use
  Company Number: 2007UW07795

PATIENT
  Age: 6 Year
  Sex: Male

DRUGS (3)
  1. IRESSA [Suspect]
     Indication: NEUROBLASTOMA
     Route: 048
     Dates: start: 20070409
  2. TOPOTECAN [Suspect]
  3. IRINOTECAN [Concomitant]

REACTIONS (1)
  - FEBRILE NEUTROPENIA [None]
